FAERS Safety Report 8301492-8 (Version None)
Quarter: 2012Q2

REPORT INFORMATION
  Report Type: 
  Country: None (occurrence: None)
  Receive Date: 20120420
  Receipt Date: 20120418
  Transmission Date: 20120825
  Serious: Yes (Hospitalization)
  Sender: FDA-Public Use
  Company Number: PHHY2012DE026337

PATIENT
  Sex: Male
  Weight: 90 kg

DRUGS (7)
  1. TORSEMIDE [Suspect]
     Indication: HYPERTENSION
     Dosage: 50 MG/DAY
     Route: 048
     Dates: start: 20091005
  2. TORSEMIDE [Suspect]
     Indication: OEDEMA
  3. SIMVASTATIN [Concomitant]
     Dosage: 1 DF, QD
     Route: 048
  4. BISOPROLOL FUMARATE [Suspect]
     Indication: HYPERTENSION
     Dosage: 5 MG/DAY
     Route: 048
     Dates: start: 20091005
  5. RASILEZ [Suspect]
     Indication: HYPERTENSION
     Dosage: 300 MG/DAY
     Route: 048
     Dates: start: 20101010
  6. RASILEZ [Suspect]
     Indication: PROTEINURIA
  7. RAMIPRIL [Suspect]
     Indication: HYPERTENSION
     Dosage: 10 MG/DAY
     Route: 048
     Dates: start: 20091005

REACTIONS (1)
  - ANGINA PECTORIS [None]
